FAERS Safety Report 18905124 (Version 1)
Quarter: 2021Q1

REPORT INFORMATION
  Report Type: Spontaneous
  Country: CN (occurrence: CN)
  Receive Date: 20210217
  Receipt Date: 20210217
  Transmission Date: 20210420
  Serious: Yes (Other)
  Sender: FDA-Public Use
  Company Number: CN-BAXTER-2021BAX003149

PATIENT
  Age: 7 Year
  Sex: Female
  Weight: 26 kg

DRUGS (5)
  1. ENDOXAN [Suspect]
     Active Substance: CYCLOPHOSPHAMIDE
     Indication: ACUTE LYMPHOCYTIC LEUKAEMIA
     Dosage: CYCLOPHOSPHAMIDE 0.94 G + (4:1) GLUCOSE AND SODIUM CHLORIDE 250ML
     Route: 041
     Dates: start: 20210118, end: 20210118
  2. 0.9% SODIUM CHLORIDE INJECTION [Suspect]
     Active Substance: SODIUM CHLORIDE
     Indication: MEDICATION DILUTION
     Dosage: SAI DE SA 0.035 G + 0.9% SODIUM CHLORIDE 1ML
     Route: 058
     Dates: start: 20210118, end: 20210120
  3. SAI DE SA (CYTARABINE) [Suspect]
     Active Substance: CYTARABINE
     Indication: ACUTE LYMPHOCYTIC LEUKAEMIA
     Dosage: SAI DE SA 0.035 G + 0.9% SODIUM CHLORIDE INJECTION 1ML
     Route: 058
     Dates: start: 20210118, end: 20210120
  4. 5% GLUCOSE AND 0.9% SODIUM CHLORIDE INJECTION [Suspect]
     Active Substance: DEXTROSE\SODIUM CHLORIDE
     Indication: MEDICATION DILUTION
     Dosage: CYCLOPHOSPHAMIDE 0.94G + (4:1) GLUCOSE AND SODIUM CHLORIDE 250ML
     Route: 041
     Dates: start: 20210118, end: 20210118
  5. MERCAPTOPURINE. [Suspect]
     Active Substance: MERCAPTOPURINE
     Indication: ACUTE LYMPHOCYTIC LEUKAEMIA
     Dosage: DOSAGE FORM: TABLET
     Route: 048
     Dates: start: 20210118, end: 20210121

REACTIONS (1)
  - Myelosuppression [Recovering/Resolving]

NARRATIVE: CASE EVENT DATE: 20210130
